FAERS Safety Report 6916400-1 (Version None)
Quarter: 2010Q3

REPORT INFORMATION
  Report Type: 
  Country: None (occurrence: None)
  Receive Date: 20100810
  Receipt Date: 20080528
  Transmission Date: 20110219
  Serious: No
  Sender: FDA-Public Use
  Company Number: US-PFIZER INC-2008046774

PATIENT
  Age: 70 Year
  Sex: Female

DRUGS (1)
  1. DETROL [Suspect]
     Indication: URINARY INCONTINENCE

REACTIONS (1)
  - ABDOMINAL PAIN UPPER [None]
